FAERS Safety Report 8244853-8 (Version None)
Quarter: 2012Q1

REPORT INFORMATION
  Report Type: 
  Country: None (occurrence: None)
  Receive Date: 20120329
  Receipt Date: 20110613
  Transmission Date: 20120608
  Serious: No
  Sender: FDA-Public Use
  Company Number: US-MYLANLABS-2011S1012793

PATIENT
  Age: 55 Year
  Sex: Female
  Weight: 93.44 kg

DRUGS (7)
  1. FENTANYL-100 [Suspect]
     Indication: BACK PAIN
     Dosage: CHANGED Q72H.
     Route: 062
     Dates: start: 20110101, end: 20110502
  2. VITAMIN B COMPLEX CAP [Concomitant]
  3. NORVASC [Concomitant]
  4. ESTRADIOL [Concomitant]
  5. WELLBUTRIN [Concomitant]
  6. TESSALON [Concomitant]
  7. ALLEGRA [Concomitant]

REACTIONS (7)
  - URTICARIA [None]
  - INSOMNIA [None]
  - RESTLESSNESS [None]
  - ANXIETY [None]
  - RASH [None]
  - DYSPNOEA [None]
  - DYSKINESIA [None]
